FAERS Safety Report 10057479 (Version 3)
Quarter: 2014Q2

REPORT INFORMATION
  Report Type: Spontaneous
  Country: US (occurrence: US)
  Receive Date: 20140403
  Receipt Date: 20140530
  Transmission Date: 20141212
  Serious: No
  Sender: FDA-Public Use
  Company Number: US-GILEAD-2014-0098529

PATIENT
  Sex: Female

DRUGS (2)
  1. LETAIRIS [Suspect]
     Indication: PRODUCT USED FOR UNKNOWN INDICATION
     Dosage: 5 MG, QD
     Route: 065
     Dates: start: 20140314
  2. MACITENTAN [Concomitant]
     Route: 065

REACTIONS (4)
  - Nasal congestion [Unknown]
  - Oedema peripheral [Unknown]
  - Sinus disorder [Unknown]
  - Cough [Unknown]
